FAERS Safety Report 16992791 (Version 1)
Quarter: 2019Q4

REPORT INFORMATION
  Report Type: Spontaneous
  Country: US (occurrence: US)
  Receive Date: 20191105
  Receipt Date: 20191105
  Transmission Date: 20200122
  Serious: No
  Sender: FDA-Public Use
  Company Number: US-CIPLA LTD.-2019US01746

PATIENT

DRUGS (2)
  1. GABAPENTIN. [Suspect]
     Active Substance: GABAPENTIN
     Dosage: 100 MILLIGRAM, QD, (100 MG 1 CAPSULES FOR 3 DAYS)
     Route: 048
     Dates: start: 201903, end: 20190324
  2. GABAPENTIN. [Suspect]
     Active Substance: GABAPENTIN
     Indication: RHEUMATOID ARTHRITIS
     Dosage: 200 MILLIGRAM, QD, (100 MG TWO CAPSULES ONCE AT NIGHT BEFORE GOING TO BED)
     Route: 048
     Dates: start: 20190207

REACTIONS (3)
  - Vision blurred [Not Recovered/Not Resolved]
  - Off label use [Unknown]
  - Product use in unapproved indication [Unknown]

NARRATIVE: CASE EVENT DATE: 20190207
